FAERS Safety Report 8451072 (Version 5)
Quarter: 2012Q4

REPORT INFORMATION
  Report Type: Report from Study
  Country: JP (occurrence: JP)
  Receive Date: 20120309
  Receipt Date: 20121129
  Transmission Date: 20130627
  Serious: Yes (Other)
  Sender: FDA-Public Use
  Company Number: JP-JNJFOC-20120302156

PATIENT
  Age: 41 Year
  Sex: Female
  Weight: 72 kg

DRUGS (14)
  1. TOPINA [Suspect]
     Indication: EPILEPSY
     Route: 048
     Dates: start: 20080711
  2. ALEVIATIN [Suspect]
     Indication: EPILEPSY
     Route: 048
     Dates: start: 20060929
  3. ALEVIATIN [Suspect]
     Indication: EPILEPSY
     Route: 048
     Dates: start: 2005
  4. TEGRETOL [Concomitant]
     Route: 048
     Dates: start: 2000, end: 2009
  5. TEGRETOL [Concomitant]
     Route: 048
  6. TEGRETOL [Concomitant]
     Route: 048
     Dates: start: 2009, end: 200902
  7. PHENOBAL [Concomitant]
     Route: 048
     Dates: start: 20090107
  8. PHENOBAL [Concomitant]
     Route: 048
     Dates: start: 2000, end: 20090106
  9. ZONISAMIDE [Concomitant]
     Route: 048
     Dates: start: 2009, end: 200902
  10. ZONISAMIDE [Concomitant]
     Route: 048
     Dates: start: 2004, end: 2009
  11. ZONISAMIDE [Concomitant]
     Route: 048
  12. GABAPEN [Concomitant]
     Route: 048
     Dates: start: 20090220, end: 20100812
  13. GABAPEN [Concomitant]
     Route: 048
     Dates: start: 20090107, end: 20090219
  14. GABAPEN [Concomitant]
     Route: 048

REACTIONS (1)
  - Cyanosis [Recovering/Resolving]
